FAERS Safety Report 6152017-7 (Version None)
Quarter: 2009Q2

REPORT INFORMATION
  Report Type: 
  Country: None (occurrence: None)
  Receive Date: 20090410
  Receipt Date: 20090402
  Transmission Date: 20091009
  Serious: Yes (Hospitalization)
  Sender: FDA-Public Use
  Company Number: PHEH2009US03497

PATIENT
  Sex: Female

DRUGS (3)
  1. DIOVAN HCT [Suspect]
     Dosage: UNK
     Dates: start: 20090301
  2. ASPIRIN [Concomitant]
  3. ATENOLOL [Concomitant]

REACTIONS (2)
  - BLOOD PRESSURE DECREASED [None]
  - MALAISE [None]
